APPROVED DRUG PRODUCT: MECLOFENAMATE SODIUM
Active Ingredient: MECLOFENAMATE SODIUM
Strength: EQ 50MG BASE
Dosage Form/Route: CAPSULE;ORAL
Application: A072848 | Product #001
Applicant: BARR LABORATORIES INC
Approved: Mar 20, 1989 | RLD: No | RS: No | Type: DISCN